FAERS Safety Report 19259063 (Version 3)
Quarter: 2021Q2

REPORT INFORMATION
  Report Type: Spontaneous
  Country: US (occurrence: US)
  Receive Date: 20210514
  Receipt Date: 20210629
  Transmission Date: 20210717
  Serious: Yes (Hospitalization, Other)
  Sender: FDA-Public Use
  Company Number: US-PFIZER INC-2021498020

PATIENT
  Age: 44 Year
  Sex: Male

DRUGS (2)
  1. INLYTA [Suspect]
     Active Substance: AXITINIB
     Dosage: 5 MG, UNK
     Dates: start: 20210501, end: 2021
  2. INLYTA [Suspect]
     Active Substance: AXITINIB
     Dosage: UNK
     Dates: start: 20210421

REACTIONS (5)
  - Peripheral swelling [Recovering/Resolving]
  - Cellulitis [Recovered/Resolved]
  - Fatigue [Unknown]
  - Joint swelling [Recovering/Resolving]
  - Fungal infection [Recovered/Resolved]

NARRATIVE: CASE EVENT DATE: 2021
